FAERS Safety Report 21029843 (Version 1)
Quarter: 2022Q2

REPORT INFORMATION
  Report Type: Report from Study
  Country: IT (occurrence: IT)
  Receive Date: 20220630
  Receipt Date: 20220630
  Transmission Date: 20220720
  Serious: Yes (Life-Threatening, Other)
  Sender: FDA-Public Use
  Company Number: IT-BRISTOL-MYERS SQUIBB COMPANY-2022-060110

PATIENT
  Age: 84 Year
  Sex: Male

DRUGS (9)
  1. LENALIDOMIDE [Suspect]
     Active Substance: LENALIDOMIDE
     Indication: Plasma cell myeloma
     Route: 048
     Dates: start: 20160114, end: 20220405
  2. DEXAMETHASONE [Suspect]
     Active Substance: DEXAMETHASONE
     Indication: Plasma cell myeloma
     Route: 048
     Dates: start: 20160114, end: 20220408
  3. LORAZEPAM [Concomitant]
     Active Substance: LORAZEPAM
  4. ASPIRIN [Concomitant]
     Active Substance: ASPIRIN
  5. OMEPRAZOLE [Concomitant]
     Active Substance: OMEPRAZOLE
  6. ACYCLOVIR [Concomitant]
     Active Substance: ACYCLOVIR
  7. BACTRIM [Concomitant]
     Active Substance: SULFAMETHOXAZOLE\TRIMETHOPRIM
     Dosage: 800+160MG
  8. CALCIUM\CHOLECALCIFEROL [Concomitant]
     Active Substance: CALCIUM\CHOLECALCIFEROL
     Dosage: 1000MG +880 IU
  9. PREGABALIN [Concomitant]
     Active Substance: PREGABALIN

REACTIONS (2)
  - Neoplasm malignant [Not Recovered/Not Resolved]
  - Squamous cell carcinoma of head and neck [Not Recovered/Not Resolved]

NARRATIVE: CASE EVENT DATE: 20220422
